FAERS Safety Report 10419250 (Version 1)
Quarter: 2014Q2

REPORT INFORMATION
  Report Type: Report from Study
  Country: US (occurrence: None)
  Receive Date: 20140627
  Receipt Date: 20140627
  Transmission Date: 20141212
  Serious: No
  Sender: FDA-Public Use
  Company Number: CABO-14004085

PATIENT
  Age: 46 Year
  Sex: Male

DRUGS (3)
  1. COMETRIQ (CABOZANTINIB) CAPSULE [Suspect]
     Indication: COLON CANCER
     Route: 048
     Dates: start: 20131214, end: 20140401
  2. LOVENOX (ENOXAPARIN SODIUM) [Concomitant]
  3. FOLIC ACID (FOLIC ACID) [Concomitant]

REACTIONS (10)
  - Swelling face [None]
  - White blood cell count decreased [None]
  - Paraesthesia [None]
  - Pain in extremity [None]
  - Chest pain [None]
  - Alopecia [None]
  - Hepatic enzyme increased [None]
  - Blood pressure increased [None]
  - Palmar-plantar erythrodysaesthesia syndrome [None]
  - Off label use [None]
